FAERS Safety Report 6675169-9 (Version None)
Quarter: 2010Q2

REPORT INFORMATION
  Report Type: 
  Country: None (occurrence: None)
  Receive Date: 20100409
  Receipt Date: 20100331
  Transmission Date: 20101027
  Serious: Yes (Death)
  Sender: FDA-Public Use
  Company Number: GXKR2009DK13702

PATIENT
  Sex: Female

DRUGS (2)
  1. VERAPAMIL (NGX) [Suspect]
     Indication: ATRIAL FIBRILLATION
     Dosage: 120 MG, UNK
     Route: 048
     Dates: start: 20070612
  2. SELO-ZOK [Interacting]
     Dosage: UNK
     Route: 048
     Dates: start: 20070611

REACTIONS (12)
  - BLOOD PRESSURE DECREASED [None]
  - BRADYCARDIA [None]
  - BULLOUS LUNG DISEASE [None]
  - CARDIAC ARREST [None]
  - CHRONIC OBSTRUCTIVE PULMONARY DISEASE [None]
  - CIRCULATORY COLLAPSE [None]
  - DRUG INTERACTION [None]
  - EXTREMITY CONTRACTURE [None]
  - HYPERHIDROSIS [None]
  - RESPIRATORY RATE DECREASED [None]
  - RESUSCITATION [None]
  - TRICUSPID VALVE INCOMPETENCE [None]
